FAERS Safety Report 9022535 (Version 1)
Quarter: 2013Q1

REPORT INFORMATION
  Report Type: Spontaneous
  Country: US (occurrence: US)
  Receive Date: 20130118
  Receipt Date: 20130118
  Transmission Date: 20140127
  Serious: No
  Sender: FDA-Public Use
  Company Number: US-GLAXOSMITHKLINE-A0961151A

PATIENT
  Age: 21 Year
  Sex: Female

DRUGS (4)
  1. PROMACTA [Suspect]
     Indication: IDIOPATHIC THROMBOCYTOPENIC PURPURA
     Dosage: 75MG AT NIGHT
     Route: 048
     Dates: start: 20110607
  2. PREDNISONE [Suspect]
     Indication: PRODUCT USED FOR UNKNOWN INDICATION
     Dates: start: 201106
  3. IRON [Concomitant]
  4. MULTI VITAMIN [Concomitant]

REACTIONS (2)
  - Ocular hyperaemia [Not Recovered/Not Resolved]
  - Platelet count abnormal [Not Recovered/Not Resolved]
